FAERS Safety Report 6738355-5 (Version None)
Quarter: 2010Q2

REPORT INFORMATION
  Report Type: 
  Country: None (occurrence: None)
  Receive Date: 20100524
  Receipt Date: 20100513
  Transmission Date: 20101027
  Serious: Yes (Hospitalization)
  Sender: FDA-Public Use
  Company Number: US-JNJFOC-20100506732

PATIENT
  Sex: Female
  Weight: 72.58 kg

DRUGS (7)
  1. REMICADE [Suspect]
     Indication: RHEUMATOID ARTHRITIS
     Dosage: RECEIVED 30 INFUSIONS
     Route: 042
  2. METHOTREXATE [Concomitant]
     Indication: RHEUMATOID ARTHRITIS
  3. FOLIC ACID [Concomitant]
  4. NABUMETONE [Concomitant]
     Indication: INFLAMMATION
  5. NABUMETONE [Concomitant]
     Indication: PAIN
  6. VITAMINE E [Concomitant]
  7. HEPARIN [Concomitant]
     Indication: THROMBOSIS

REACTIONS (7)
  - CYANOSIS [None]
  - FEELING COLD [None]
  - GAIT DISTURBANCE [None]
  - HEART VALVE INCOMPETENCE [None]
  - HYPERTENSION [None]
  - INFUSION RELATED REACTION [None]
  - SYSTEMIC MYCOSIS [None]
